FAERS Safety Report 5514089-X (Version None)
Quarter: 2007Q4

REPORT INFORMATION
  Report Type: 
  Country: None (occurrence: None)
  Receive Date: 20071106
  Receipt Date: 20070509
  Transmission Date: 20080405
  Serious: Yes (Hospitalization, Other)
  Sender: FDA-Public Use
  Company Number: US_0503114526

PATIENT
  Age: 29 Year
  Sex: Male

DRUGS (10)
  1. ZYPREXA [Suspect]
     Indication: SCHIZOAFFECTIVE DISORDER
  2. PROZAC [Suspect]
     Dosage: 20 MG, 2/D
  3. COGENTIN [Concomitant]
  4. LITHIUM CARBONATE [Concomitant]
  5. DIPHENHYDRAMINE HCL [Concomitant]
  6. WELLBUTRIN [Concomitant]
  7. DEPAKOTE [Concomitant]
  8. PAXIL [Concomitant]
  9. PROLIXIN [Concomitant]
  10. DALMANE [Concomitant]

REACTIONS (30)
  - ABNORMAL BEHAVIOUR [None]
  - AGGRESSION [None]
  - ANGER [None]
  - APATHY [None]
  - ASTHENIA [None]
  - BLOOD CHOLESTEROL INCREASED [None]
  - BLOOD GLUCOSE INCREASED [None]
  - DELUSION [None]
  - DELUSIONS, MIXED [None]
  - DEPRESSION [None]
  - DIABETES MELLITUS [None]
  - DIABETIC COMA [None]
  - DIABETIC KETOACIDOSIS [None]
  - FLAT AFFECT [None]
  - GASTROOESOPHAGEAL REFLUX DISEASE [None]
  - GRANDIOSITY [None]
  - HYPERGLYCAEMIA [None]
  - IMPULSE-CONTROL DISORDER [None]
  - INSOMNIA [None]
  - MANIA [None]
  - NAUSEA [None]
  - OBESITY [None]
  - PANCREATITIS [None]
  - PARANOIA [None]
  - SOCIAL AVOIDANT BEHAVIOUR [None]
  - SUICIDAL IDEATION [None]
  - TENSION [None]
  - TREMOR [None]
  - WEIGHT DECREASED [None]
  - WEIGHT INCREASED [None]
